FAERS Safety Report 9637949 (Version 1)
Quarter: 2013Q4

REPORT INFORMATION
  Report Type: Spontaneous
  Country: BR (occurrence: BR)
  Receive Date: 20131022
  Receipt Date: 20131022
  Transmission Date: 20140711
  Serious: Yes (Other)
  Sender: FDA-Public Use
  Company Number: BR-ELI_LILLY_AND_COMPANY-BR201310004510

PATIENT
  Age: 69 Year
  Sex: Female

DRUGS (2)
  1. HUMAN INSULIN (RDNA ORIGIN) NPH [Suspect]
     Indication: PRODUCT USED FOR UNKNOWN INDICATION
     Dosage: UNK, UNKNOWN
     Route: 065
  2. HUMAN INSULIN (RDNA ORIGIN) REGULAR [Suspect]
     Indication: PRODUCT USED FOR UNKNOWN INDICATION
     Dosage: UNK, UNKNOWN
     Route: 065

REACTIONS (2)
  - Cataract [Unknown]
  - Blood glucose increased [Not Recovered/Not Resolved]
